FAERS Safety Report 5734930-5 (Version None)
Quarter: 2008Q2

REPORT INFORMATION
  Report Type: 
  Country: None (occurrence: None)
  Receive Date: 20080509
  Receipt Date: 20080502
  Transmission Date: 20081010
  Serious: Yes (Death, Other)
  Sender: FDA-Public Use
  Company Number: APP200800347

PATIENT
  Age: 68 Year
  Sex: Male
  Weight: 81.6475 kg

DRUGS (6)
  1. HEPARIN SODIUM INJECTION [Suspect]
     Indication: ISCHAEMIC STROKE
     Dosage: 4000 USP UNITS, ONCE, INTRAVENOUS
     Route: 042
     Dates: start: 20080217, end: 20080217
  2. HEPARIN [Suspect]
     Indication: ISCHAEMIC STROKE
     Dosage: BAXTER PREMIXED BAG, INTRAVENOUS
     Route: 042
     Dates: start: 20080218, end: 20080218
  3. COUMADIN [Concomitant]
  4. ANTIBIOTIC (ANTIBIOTICS) [Concomitant]
  5. LANOXIN [Concomitant]
  6. XANAX [Concomitant]

REACTIONS (10)
  - ASPIRATION [None]
  - BLOOD PRESSURE INCREASED [None]
  - CEREBRAL HAEMORRHAGE [None]
  - GENERAL PHYSICAL HEALTH DETERIORATION [None]
  - HEART RATE INCREASED [None]
  - MYDRIASIS [None]
  - PNEUMONIA ASPIRATION [None]
  - RESPIRATORY DISTRESS [None]
  - RESPIRATORY RATE DECREASED [None]
  - VOMITING [None]
